FAERS Safety Report 18070376 (Version 10)
Quarter: 2025Q2

REPORT INFORMATION
  Report Type: Spontaneous
  Country: FR (occurrence: FR)
  Receive Date: 20200727
  Receipt Date: 20250403
  Transmission Date: 20250716
  Serious: Yes (Hospitalization, Other)
  Sender: CHIESI
  Company Number: FR-AEGERION PHARMACEUTICAL, INC-AEGR004919

PATIENT

DRUGS (18)
  1. METRELEPTIN [Suspect]
     Active Substance: METRELEPTIN
     Indication: Congenital generalised lipodystrophy
     Dosage: 5.8 MILLIGRAM, QD
     Route: 058
     Dates: start: 20200218, end: 20200301
  2. METRELEPTIN [Suspect]
     Active Substance: METRELEPTIN
     Dosage: 2.5 MG, QD
     Route: 058
     Dates: start: 20200307, end: 20200308
  3. METRELEPTIN [Suspect]
     Active Substance: METRELEPTIN
     Dosage: 5 MG, QD
     Route: 058
     Dates: start: 20200309, end: 20200309
  4. METRELEPTIN [Suspect]
     Active Substance: METRELEPTIN
     Dosage: 2.5 MG, QD
     Route: 058
     Dates: start: 20200310, end: 20200312
  5. METRELEPTIN [Suspect]
     Active Substance: METRELEPTIN
     Dosage: 5 MILLIGRAM, QD
     Dates: start: 20200218
  6. TRESIBA [Concomitant]
     Active Substance: INSULIN DEGLUDEC
     Indication: Diabetes mellitus
     Dosage: 16 IU, QD
     Dates: start: 20191118
  7. NOVORAPID [Concomitant]
     Active Substance: INSULIN ASPART
     Indication: Diabetes mellitus
     Dates: start: 20181205
  8. METFORMINE                         /00082701/ [Concomitant]
     Indication: Diabetes mellitus
     Dosage: 850 MG, BID
     Dates: start: 20190505
  9. METFORMINE                         /00082701/ [Concomitant]
     Dosage: 1000 MILLIGRAM, BID
     Dates: start: 201804
  10. INSULIN DEGLUDEC [Concomitant]
     Active Substance: INSULIN DEGLUDEC
     Indication: Diabetes mellitus
     Dosage: 1 DOSAGE FORM, QD
     Dates: start: 200804
  11. FENOFIBRATE [Concomitant]
     Active Substance: FENOFIBRATE
     Indication: Hypertriglyceridaemia
     Dosage: 200 MILLIGRAM, QD
     Dates: start: 20211117
  12. SEMAGLUTIDE [Concomitant]
     Active Substance: SEMAGLUTIDE
     Indication: Diabetes mellitus
     Dates: start: 20210301
  13. ENALAPRIL [Concomitant]
     Active Substance: ENALAPRIL
     Indication: Blood pressure increased
     Dosage: 10 MILLIGRAM, QD
     Dates: start: 20200715, end: 20201204
  14. ENALAPRIL [Concomitant]
     Active Substance: ENALAPRIL
     Dosage: 5 MILLIGRAM, QD
     Dates: start: 20210730
  15. AMLODIPINE [Concomitant]
     Active Substance: AMLODIPINE BESYLATE
     Indication: Blood pressure increased
     Dosage: 5 MILLIGRAM, QD
     Dates: start: 20201204, end: 20210730
  16. FLURBIPROFEN [Concomitant]
     Active Substance: FLURBIPROFEN
     Indication: Dysmenorrhoea
     Dates: start: 20221227
  17. INSULIN ASPART [Concomitant]
     Active Substance: INSULIN ASPART
     Indication: Diabetes mellitus
     Dates: start: 201804, end: 20220424
  18. DAPAGLIFLOZIN [Concomitant]
     Active Substance: DAPAGLIFLOZIN
     Indication: Diabetes mellitus
     Dosage: 10 MILLIGRAM, QD
     Dates: start: 20201227

REACTIONS (13)
  - Throat irritation [Unknown]
  - Eyelids pruritus [Unknown]
  - Injection site warmth [Unknown]
  - Eyelid oedema [Recovered/Resolved]
  - Oral pruritus [Recovered/Resolved]
  - Injection site oedema [Recovered/Resolved]
  - Injection site pruritus [Unknown]
  - Injection site induration [Recovered/Resolved]
  - Anaphylactic reaction [Recovered/Resolved]
  - Injection site erythema [Unknown]
  - Hypersensitivity [Unknown]
  - Injection site reaction [Recovered/Resolved]
  - Drug specific antibody present [Unknown]

NARRATIVE: CASE EVENT DATE: 20200301
